FAERS Safety Report 6979720-0 (Version None)
Quarter: 2010Q3

REPORT INFORMATION
  Report Type: 
  Country: None (occurrence: None)
  Receive Date: 20100913
  Receipt Date: 20100907
  Transmission Date: 20110219
  Serious: Yes (Other)
  Sender: FDA-Public Use
  Company Number: IT-BRISTOL-MYERS SQUIBB COMPANY-15277841

PATIENT
  Age: 78 Year
  Sex: Male

DRUGS (8)
  1. COUMADIN [Suspect]
     Indication: ARTERIAL DISORDER
     Dosage: INTERRUPTED ON 18AUG2010 STOPPED TAKING COUMADIN FOR 1 DAY THEN REDUCED
     Dates: start: 20100429
  2. CIPRALEX [Suspect]
     Indication: DEPRESSION
     Dosage: FILM COATED ORAL TABS
     Route: 048
     Dates: start: 20100803, end: 20100818
  3. MEPRAL [Concomitant]
     Dosage: DOSAGE:20 MG MODIFIED RELEASE ORAL CAPS
     Route: 048
  4. LOBIVON [Concomitant]
     Dosage: 5MG TABS
     Route: 048
  5. OLMESARTAN MEDOXOMIL + HCTZ [Concomitant]
     Dosage: DOSAGE:20MG/25MG FILM COATED ORAL TABS
     Route: 048
  6. ALPRAZOLAM [Concomitant]
     Dosage: DOSAGE:0.75MG/ML ORAL DROPS
     Route: 048
  7. SIMVASTATIN [Concomitant]
     Dosage: DOSAGE:20 MG FILM COATED ORAL TABS
     Route: 048
  8. GLIBOMET [Concomitant]
     Dosage: DOSAGE:400MG + 2.5MG FILM COATED ORAL TABS.
     Route: 048

REACTIONS (2)
  - DEPRESSION [None]
  - INTERNATIONAL NORMALISED RATIO INCREASED [None]
